FAERS Safety Report 7644350-4 (Version None)
Quarter: 2011Q3

REPORT INFORMATION
  Report Type: 
  Country: None (occurrence: None)
  Receive Date: 20110729
  Receipt Date: 20110718
  Transmission Date: 20111222
  Serious: Yes (Hospitalization)
  Sender: FDA-Public Use
  Company Number: US-ELI_LILLY_AND_COMPANY-US201106006159

PATIENT
  Sex: Female
  Weight: 123.36 kg

DRUGS (17)
  1. LIALDA [Concomitant]
     Dosage: 0.5 %, BID
     Route: 048
  2. NORCO [Concomitant]
     Dosage: UNK, QD
  3. CIMZIA [Concomitant]
     Dosage: UNK, MONTHLY (1/M)
     Route: 058
  4. CYMBALTA [Concomitant]
     Dosage: UNK, QD
     Route: 048
  5. VALIUM [Concomitant]
     Dosage: UNK, QD
  6. LOVAZA [Concomitant]
     Dosage: UNK, BID
  7. PREDNISONE [Concomitant]
     Dosage: UNK, QD
     Route: 048
  8. NEXIUM [Concomitant]
     Dosage: UNK, QD
  9. TIMOLOL MALEATE [Concomitant]
     Dosage: UNK, QD
     Route: 047
  10. ASPIRIN [Concomitant]
     Dosage: UNK, QD
     Route: 048
  11. LISINOPRIL [Concomitant]
     Dosage: UNK, QD
     Route: 048
  12. PREDNISONE [Concomitant]
     Dosage: 15 MG, PRN
  13. VITAMIN D [Concomitant]
     Dosage: 50000 IU, WEEKLY (1/W)
     Route: 048
  14. IMURAN [Concomitant]
     Dosage: 250 MG, QD
     Route: 048
  15. BYETTA [Suspect]
     Indication: TYPE 2 DIABETES MELLITUS
     Dosage: 5 UG, BID
     Route: 058
  16. ZOLOFT [Concomitant]
     Dosage: UNK, QD
     Route: 048
  17. CRESTOR [Concomitant]
     Dosage: 20 MG, QD

REACTIONS (4)
  - CHOLELITHIASIS [None]
  - SLEEP APNOEA SYNDROME [None]
  - WEIGHT DECREASED [None]
  - DECREASED APPETITE [None]
